FAERS Safety Report 23649513 (Version 4)
Quarter: 2024Q3

REPORT INFORMATION
  Report Type: Report from Study
  Country: GB (occurrence: GB)
  Receive Date: 20240319
  Receipt Date: 20240920
  Transmission Date: 20241016
  Serious: Yes (Other)
  Sender: NOVARTIS
  Company Number: GB-002147023-NVSC2024GB059171

PATIENT
  Sex: Female

DRUGS (2)
  1. KESIMPTA [Suspect]
     Active Substance: OFATUMUMAB
     Indication: Relapsing-remitting multiple sclerosis
     Dosage: 20 MG, QMO
     Route: 058
     Dates: start: 20230901
  2. KESIMPTA [Suspect]
     Active Substance: OFATUMUMAB
     Dosage: 20 MG, OTHER (LOADING DOSES)
     Route: 058

REACTIONS (6)
  - Kidney infection [Recovered/Resolved]
  - Otitis media chronic [Unknown]
  - Deafness [Recovering/Resolving]
  - Urinary tract infection [Recovered/Resolved]
  - Ear infection [Recovered/Resolved]
  - Ear congestion [Recovering/Resolving]

NARRATIVE: CASE EVENT DATE: 20231201
